FAERS Safety Report 6841751-9 (Version None)
Quarter: 2010Q3

REPORT INFORMATION
  Report Type: 
  Country: None (occurrence: None)
  Receive Date: 20100714
  Receipt Date: 20070716
  Transmission Date: 20110219
  Serious: No
  Sender: FDA-Public Use
  Company Number: US-PFIZER INC-2007058776

PATIENT
  Sex: Male
  Weight: 68.2 kg

DRUGS (14)
  1. CHANTIX [Suspect]
     Indication: SMOKING CESSATION THERAPY
     Route: 048
     Dates: start: 20070714, end: 20070714
  2. ISOSORBIDE MONONITRATE [Concomitant]
  3. TOPROL-XL [Concomitant]
  4. NORVASC [Concomitant]
  5. ALL OTHER THERAPEUTIC PRODUCTS [Concomitant]
  6. HYDRALAZINE HCL [Concomitant]
  7. ALL OTHER THERAPEUTIC PRODUCTS [Concomitant]
  8. FUROSEMIDE [Concomitant]
  9. HMG COA REDUCTASE INHIBITORS [Concomitant]
  10. GEMFIBROZIL [Concomitant]
  11. RENAGEL [Concomitant]
  12. FOSINOPRIL SODIUM [Concomitant]
  13. MONTELUKAST SODIUM [Concomitant]
  14. ADVAIR DISKUS 100/50 [Concomitant]
     Dosage: 250/50 MG A DAY

REACTIONS (1)
  - INSOMNIA [None]
